FAERS Safety Report 6390189-X (Version None)
Quarter: 2009Q4

REPORT INFORMATION
  Report Type: 
  Country: None (occurrence: None)
  Receive Date: 20091003
  Receipt Date: 20090917
  Transmission Date: 20100525
  Serious: Yes (Other)
  Sender: FDA-Public Use
  Company Number: 8052355

PATIENT
  Age: 47 Year
  Sex: Female
  Weight: 62.5 kg

DRUGS (5)
  1. CIMZIA [Suspect]
     Indication: CROHN'S DISEASE
     Dosage: 400 MG SC
     Route: 058
     Dates: start: 20080101, end: 20090701
  2. OXYCONTIN [Concomitant]
  3. HALCION [Concomitant]
  4. TRAZODONE HCL [Concomitant]
  5. TRAMADOL HCL [Concomitant]

REACTIONS (2)
  - PNEUMONIA ASPIRATION [None]
  - SYSTEMIC LUPUS ERYTHEMATOSUS [None]
